FAERS Safety Report 6985950-4 (Version None)
Quarter: 2010Q3

REPORT INFORMATION
  Report Type: 
  Country: None (occurrence: None)
  Receive Date: 20100915
  Receipt Date: 20100915
  Transmission Date: 20110219
  Serious: Yes (Disabling, Other)
  Sender: FDA-Public Use
  Company Number: US-BRACCO-005149

PATIENT
  Sex: Male

DRUGS (8)
  1. MAGNEVIST [Suspect]
  2. OPTIMARK [Suspect]
  3. PROHANCE [Suspect]
     Indication: RENAL SCAN
     Route: 065
     Dates: start: 20030703, end: 20030703
  4. PROHANCE [Suspect]
     Indication: NUCLEAR MAGNETIC RESONANCE IMAGING
     Route: 065
     Dates: start: 20050414, end: 20050414
  5. OMNISCAN [Suspect]
     Indication: NUCLEAR MAGNETIC RESONANCE IMAGING ABDOMINAL
     Route: 065
     Dates: start: 20040713, end: 20040713
  6. OMNISCAN [Suspect]
     Indication: NUCLEAR MAGNETIC RESONANCE IMAGING BRAIN
     Route: 065
     Dates: start: 20041015, end: 20041015
  7. OMNISCAN [Suspect]
     Indication: NUCLEAR MAGNETIC RESONANCE IMAGING
     Route: 065
     Dates: start: 20040713, end: 20040713
  8. MULTIHANCE [Suspect]
     Indication: DIAGNOSTIC PROCEDURE
     Route: 065

REACTIONS (1)
  - NEPHROGENIC SYSTEMIC FIBROSIS [None]
